FAERS Safety Report 5818520-1 (Version None)
Quarter: 2008Q3

REPORT INFORMATION
  Report Type: 
  Country: None (occurrence: None)
  Receive Date: 20080717
  Receipt Date: 20080702
  Transmission Date: 20090109
  Serious: No
  Sender: FDA-Public Use
  Company Number: C-08-0018-W

PATIENT
  Age: 46 Year
  Sex: Female
  Weight: 63.5036 kg

DRUGS (1)
  1. TERBINAFINE HCL [Suspect]
     Indication: ONYCHOMYCOSIS
     Dosage: 1 PER DAY ORALLY
     Route: 048
     Dates: start: 20080601

REACTIONS (3)
  - COUGH [None]
  - DRY THROAT [None]
  - POSTNASAL DRIP [None]
